FAERS Safety Report 22396572 (Version 3)
Quarter: 2023Q2

REPORT INFORMATION
  Report Type: Spontaneous
  Country: US (occurrence: US)
  Receive Date: 20230601
  Receipt Date: 20230620
  Transmission Date: 20230722
  Serious: No
  Sender: FDA-Public Use
  Company Number: US-APIL-2311123US

PATIENT
  Age: 83 Year
  Sex: Female

DRUGS (3)
  1. LUMIGAN [Suspect]
     Active Substance: BIMATOPROST
     Indication: Intraocular pressure test
     Route: 047
     Dates: end: 202305
  2. LUMIGAN [Suspect]
     Active Substance: BIMATOPROST
     Indication: Glaucoma
     Route: 047
  3. LUMIGAN [Suspect]
     Active Substance: BIMATOPROST

REACTIONS (8)
  - Dry throat [Unknown]
  - Blepharospasm [Unknown]
  - Dry eye [Unknown]
  - Eyelid margin crusting [Unknown]
  - Growth of eyelashes [Unknown]
  - Micturition frequency decreased [Unknown]
  - Eyelid margin crusting [Unknown]
  - Dysphonia [Unknown]

NARRATIVE: CASE EVENT DATE: 20230501
